FAERS Safety Report 4964464-7 (Version None)
Quarter: 2006Q2

REPORT INFORMATION
  Report Type: 
  Country: None (occurrence: None)
  Receive Date: 20060406
  Receipt Date: 20060330
  Transmission Date: 20061013
  Serious: Yes (Hospitalization)
  Sender: FDA-Public Use
  Company Number: FR-AVENTIS-200611171FR

PATIENT
  Age: 54 Year
  Sex: Female

DRUGS (1)
  1. FLAGYL [Suspect]
     Indication: VULVOVAGINAL MYCOTIC INFECTION
     Route: 067
     Dates: start: 20060125, end: 20060130

REACTIONS (3)
  - HAEMATOMA [None]
  - IDIOPATHIC THROMBOCYTOPENIC PURPURA [None]
  - THROMBOCYTOPENIA [None]
